FAERS Safety Report 5491236-X (Version None)
Quarter: 2007Q4

REPORT INFORMATION
  Report Type: 
  Country: None (occurrence: None)
  Receive Date: 20071017
  Receipt Date: 20071010
  Transmission Date: 20080405
  Serious: Yes (Hospitalization)
  Sender: FDA-Public Use
  Company Number: 2007-03368

PATIENT
  Age: 63 Year
  Sex: Male

DRUGS (6)
  1. VELCADE [Suspect]
     Indication: MULTIPLE MYELOMA
     Dates: start: 20070724, end: 20070928
  2. RITUXIMAB                   (RITUXIMAB) [Suspect]
     Indication: MULTIPLE MYELOMA
     Dates: start: 20070724, end: 20070925
  3. CYCLOPHOSPHAMIDE [Suspect]
     Indication: MANTLE CELL LYMPHOMA
     Dates: start: 20070724, end: 20070925
  4. ADRIAMYCIN(DOXORUBICIN) VIAL [Suspect]
     Indication: MANTLE CELL LYMPHOMA
     Dates: start: 20070724, end: 20070925
  5. VINCRISTINE [Suspect]
     Indication: MANTLE CELL LYMPHOMA
     Dates: start: 20070724, end: 20070925
  6. PREDNISONE TAB [Suspect]
     Indication: MANTLE CELL LYMPHOMA
     Dates: start: 20070724, end: 20070925

REACTIONS (1)
  - HYPOGLYCAEMIA [None]
